FAERS Safety Report 17376676 (Version 1)
Quarter: 2020Q1

REPORT INFORMATION
  Report Type: Spontaneous
  Country: US (occurrence: US)
  Receive Date: 20200205
  Receipt Date: 20200205
  Transmission Date: 20200409
  Serious: Yes (Disabling)
  Sender: FDA-Public Use
  Company Number: None

PATIENT
  Age: 63 Year
  Sex: Male
  Weight: 94.5 kg

DRUGS (10)
  1. ATORVASTATIN [Concomitant]
     Active Substance: ATORVASTATIN
  2. VITAMIN D [Concomitant]
     Active Substance: VITAMIN D NOS
  3. VITAMINS NOS [Concomitant]
     Active Substance: VITAMINS
  4. EYLEA [Suspect]
     Active Substance: AFLIBERCEPT
     Indication: AGE-RELATED MACULAR DEGENERATION
     Dosage: ?          OTHER FREQUENCY:ONCE EVERY 4 WEEKS;?
     Route: 001
     Dates: start: 20191113, end: 20200108
  5. METFORMIN [Concomitant]
     Active Substance: METFORMIN HYDROCHLORIDE
  6. FISH OIL [Concomitant]
     Active Substance: FISH OIL
  7. SMALL DOSE ASPIRIN [Concomitant]
  8. PROPANOL [Concomitant]
     Active Substance: PROPRANOLOL HYDROCHLORIDE
  9. FLOWMAX [Concomitant]
  10. FLUXOTENE [Concomitant]

REACTIONS (3)
  - Eye pain [None]
  - Eye inflammation [None]
  - Blindness unilateral [None]

NARRATIVE: CASE EVENT DATE: 20200111
